FAERS Safety Report 15531032 (Version 1)
Quarter: 2018Q4

REPORT INFORMATION
  Report Type: Spontaneous
  Country: IN (occurrence: IN)
  Receive Date: 20181019
  Receipt Date: 20181019
  Transmission Date: 20190205
  Serious: Yes (Other)
  Sender: FDA-Public Use
  Company Number: IN-IPCA LABORATORIES LIMITED-IPC-2018-IN-002121

PATIENT

DRUGS (1)
  1. LOSANORM-50 TABLETS [Suspect]
     Active Substance: LOSARTAN POTASSIUM
     Indication: BLOOD PRESSURE MEASUREMENT
     Dosage: UNK
     Route: 065

REACTIONS (7)
  - Blood pressure increased [Unknown]
  - Residual urine volume increased [Unknown]
  - Drug ineffective [Unknown]
  - Product size issue [Unknown]
  - Renal pain [Unknown]
  - Headache [Unknown]
  - Dizziness [Unknown]
